FAERS Safety Report 6405164-6 (Version None)
Quarter: 2009Q4

REPORT INFORMATION
  Report Type: 
  Country: None (occurrence: None)
  Receive Date: 20091019
  Receipt Date: 20090917
  Transmission Date: 20100525
  Serious: No
  Sender: FDA-Public Use
  Company Number: US-BAYER-200933843NA

PATIENT
  Age: 51 Year
  Sex: Male
  Weight: 114 kg

DRUGS (5)
  1. ULTRAVIST 300 [Suspect]
     Indication: COMPUTERISED TOMOGRAM THORAX
     Dosage: TOTAL DAILY DOSE: 100 ML  UNIT DOSE: 100 ML
     Route: 042
     Dates: start: 20090917, end: 20090917
  2. ALTACE [Concomitant]
  3. AMBIEN [Concomitant]
  4. LIPITOR [Concomitant]
  5. VIAGRA [Concomitant]

REACTIONS (2)
  - PRURITUS [None]
  - URTICARIA [None]
